FAERS Safety Report 6646119-6 (Version None)
Quarter: 2010Q1

REPORT INFORMATION
  Report Type: 
  Country: None (occurrence: None)
  Receive Date: 20100323
  Receipt Date: 20100310
  Transmission Date: 20100710
  Serious: Yes (Other)
  Sender: FDA-Public Use
  Company Number: JP-PFIZER INC-2010031459

PATIENT
  Age: 30 Year
  Sex: Female

DRUGS (5)
  1. CELECOX [Suspect]
     Indication: MUSCLE STRAIN
     Dosage: 200 MG, UNKOWN/D
     Route: 048
     Dates: start: 20100106, end: 20100106
  2. GASLON [Suspect]
     Indication: MUSCLE STRAIN
     Dosage: 1 DF, 2X/DAY
     Route: 048
     Dates: start: 20100106, end: 20100106
  3. MYONAL [Suspect]
     Indication: MUSCLE STRAIN
     Dosage: 1 DF, 3X/DAY
     Route: 048
     Dates: start: 20100106, end: 20100106
  4. MS HOT PACK [Concomitant]
     Dosage: UNK
     Dates: start: 20100106, end: 20100106
  5. LOXONIN [Concomitant]
     Dosage: UNK
     Dates: start: 20100106, end: 20100106

REACTIONS (2)
  - ANAPHYLACTIC REACTION [None]
  - PANIC DISORDER [None]
